FAERS Safety Report 18263928 (Version 1)
Quarter: 2020Q3

REPORT INFORMATION
  Report Type: Spontaneous
  Country: NL (occurrence: NL)
  Receive Date: 20200914
  Receipt Date: 20200914
  Transmission Date: 20201103
  Serious: Yes (Other)
  Sender: FDA-Public Use
  Company Number: NVSC2020NL249200

PATIENT
  Sex: Female
  Weight: 85 kg

DRUGS (2)
  1. PREDNISONE. [Suspect]
     Active Substance: PREDNISONE
     Indication: SUDDEN HEARING LOSS
     Dosage: 30 MG, QD (1X PER DAG 1 TABLET)
     Route: 065
     Dates: start: 20200730
  2. LEVOTHYROXINE. [Concomitant]
     Active Substance: LEVOTHYROXINE
     Indication: PRODUCT USED FOR UNKNOWN INDICATION
     Dosage: 112 UG
     Route: 065

REACTIONS (1)
  - Vitreous detachment [Recovered/Resolved]
